FAERS Safety Report 11363105 (Version 1)
Quarter: 2015Q3

REPORT INFORMATION
  Report Type: Spontaneous
  Country: US (occurrence: US)
  Receive Date: 20150810
  Receipt Date: 20150810
  Transmission Date: 20151125
  Serious: Yes (Other)
  Sender: FDA-Public Use
  Company Number: US-009507513-1508USA003290

PATIENT
  Age: 20 Year
  Sex: Male

DRUGS (1)
  1. PROSCAR [Suspect]
     Active Substance: FINASTERIDE
     Indication: ALOPECIA
     Dosage: UNK
     Route: 048
     Dates: start: 201308

REACTIONS (2)
  - Drug administration error [Unknown]
  - Carcinoid tumour of the prostate [Unknown]

NARRATIVE: CASE EVENT DATE: 201308
